FAERS Safety Report 8235866-0 (Version None)
Quarter: 2012Q1

REPORT INFORMATION
  Report Type: 
  Country: None (occurrence: None)
  Receive Date: 20120326
  Receipt Date: 20120321
  Transmission Date: 20120608
  Serious: No
  Sender: FDA-Public Use
  Company Number: US-PFIZER INC-2012074210

PATIENT
  Sex: Female
  Weight: 72.562 kg

DRUGS (4)
  1. ZYPREXA [Suspect]
     Indication: ANXIETY
     Dosage: HALF A TABLET OF 5MG, DAILY
     Dates: start: 20120224, end: 20120226
  2. XANAX [Suspect]
     Indication: PANIC DISORDER
     Dosage: 1 MG, 3X/DAY
     Dates: start: 19860101
  3. ZYPREXA [Suspect]
     Indication: PANIC ATTACK
  4. XANAX [Suspect]
     Indication: ANXIETY
     Dosage: 1 MG, 1X/DAY
     Dates: start: 20100101

REACTIONS (3)
  - ANXIETY [None]
  - PANIC ATTACK [None]
  - INSOMNIA [None]
